FAERS Safety Report 6404146-8 (Version None)
Quarter: 2009Q4

REPORT INFORMATION
  Report Type: 
  Country: None (occurrence: None)
  Receive Date: 20091016
  Receipt Date: 20090928
  Transmission Date: 20100525
  Serious: No
  Sender: FDA-Public Use
  Company Number: CA-ALEXION-A200900788

PATIENT
  Sex: Female

DRUGS (5)
  1. SOLIRIS [Suspect]
     Indication: PAROXYSMAL NOCTURNAL HAEMOGLOBINURIA
     Dosage: 600 MG, UNK
     Route: 042
     Dates: start: 20070622
  2. SOLIRIS [Suspect]
     Dosage: 900 MG, Q2W
     Route: 042
     Dates: start: 20070720
  3. COUMADIN [Concomitant]
     Dosage: 3.5 MG, QD
     Route: 048
  4. PREDNISONE [Concomitant]
     Dosage: 5 MG, QD
     Route: 048
  5. FOLIC ACID [Concomitant]
     Dosage: 10 MG, QD
     Route: 048

REACTIONS (2)
  - OCULAR ICTERUS [None]
  - YELLOW SKIN [None]
